FAERS Safety Report 9342848 (Version 4)
Quarter: 2013Q3

REPORT INFORMATION
  Report Type: Report from Study
  Country: JP (occurrence: JP)
  Receive Date: 20130611
  Receipt Date: 20130807
  Transmission Date: 20140515
  Serious: Yes (Death, Hospitalization, Other)
  Sender: FDA-Public Use
  Company Number: JP-JNJFOC-20130600813

PATIENT
  Age: 78 Year
  Sex: Male
  Weight: 54 kg

DRUGS (6)
  1. STELARA [Suspect]
     Indication: PSORIASIS
     Route: 058
     Dates: start: 20130530
  2. STELARA [Suspect]
     Indication: PSORIASIS
     Route: 058
     Dates: start: 20130307
  3. STELARA [Suspect]
     Indication: PSORIASIS
     Route: 058
     Dates: start: 20121213
  4. STELARA [Suspect]
     Indication: PSORIASIS
     Route: 058
     Dates: start: 20121115
  5. DERMOVATE [Concomitant]
     Indication: PSORIASIS
     Route: 061
     Dates: start: 20120830
  6. DOVONEX [Concomitant]
     Indication: PSORIASIS
     Route: 061
     Dates: start: 20120830

REACTIONS (3)
  - Sepsis [Fatal]
  - Pneumonia escherichia [Fatal]
  - White blood cell count decreased [Not Recovered/Not Resolved]
